FAERS Safety Report 5913570-9 (Version None)
Quarter: 2008Q4

REPORT INFORMATION
  Report Type: 
  Country: None (occurrence: None)
  Receive Date: 20081007
  Receipt Date: 20080926
  Transmission Date: 20090506
  Serious: Yes (Other)
  Sender: FDA-Public Use
  Company Number: CHPA2008GB14598

PATIENT
  Age: 60 Year
  Sex: Female

DRUGS (2)
  1. NICOTINE [Suspect]
     Indication: SMOKING CESSATION THERAPY
     Dosage: BUCCAL
     Route: 002
     Dates: start: 20070601
  2. NICOTINE [Suspect]
     Dosage: 2 MG UNK BUCCAL
     Route: 002
     Dates: start: 20070701

REACTIONS (2)
  - DRUG DEPENDENCE [None]
  - NICOTINE DEPENDENCE [None]
